FAERS Safety Report 13577913 (Version 1)
Quarter: 2017Q2

REPORT INFORMATION
  Report Type: Spontaneous
  Country: JP (occurrence: JP)
  Receive Date: 20170524
  Receipt Date: 20170524
  Transmission Date: 20170830
  Serious: Yes (Hospitalization)
  Sender: FDA-Public Use
  Company Number: JP-PFIZER INC-2017214579

PATIENT
  Age: 59 Year
  Sex: Male

DRUGS (5)
  1. NICORANDIL [Concomitant]
     Active Substance: NICORANDIL
     Indication: ANGINA PECTORIS
     Dosage: 15 MG, DAILY
     Dates: start: 1994
  2. DISOPYRAMIDE [Suspect]
     Active Substance: DISOPYRAMIDE
     Indication: ATRIAL FIBRILLATION
     Dosage: 50 MG, DAILY
     Dates: start: 1987
  3. METILDIGOXIN [Concomitant]
     Active Substance: METILDIGOXIN
     Indication: ANGINA PECTORIS
     Dosage: 0.05 MG, DAILY
  4. CLARITHROMYCIN. [Interacting]
     Active Substance: CLARITHROMYCIN
     Indication: BRONCHITIS CHRONIC
     Dosage: 600 MG, DAILY
     Dates: start: 19970623
  5. ISOSORBIDE DINITRATE. [Concomitant]
     Active Substance: ISOSORBIDE DINITRATE
     Indication: ANGINA PECTORIS
     Dosage: 120 MG, DAILY
     Dates: start: 1994

REACTIONS (5)
  - Coma [Recovered/Resolved]
  - Drug level increased [Recovered/Resolved]
  - Shock hypoglycaemic [Recovered/Resolved]
  - Drug interaction [Recovered/Resolved]
  - Coma [Recovered/Resolved]

NARRATIVE: CASE EVENT DATE: 199707
